FAERS Safety Report 19189896 (Version 1)
Quarter: 2021Q2

REPORT INFORMATION
  Report Type: Spontaneous
  Country: GB (occurrence: GB)
  Receive Date: 20210428
  Receipt Date: 20210428
  Transmission Date: 20210717
  Serious: Yes (Hospitalization, Other)
  Sender: FDA-Public Use
  Company Number: GB-GLAXOSMITHKLINE-GB2021GSK089532

PATIENT
  Age: 61 Year
  Sex: Male

DRUGS (1)
  1. MEPOLIZUMAB [Suspect]
     Active Substance: MEPOLIZUMAB
     Indication: EOSINOPHIL COUNT INCREASED
     Dosage: UNK
     Dates: start: 2013

REACTIONS (9)
  - Dyspnoea [Recovered/Resolved]
  - Eosinopenia [Unknown]
  - Cough [Recovered/Resolved]
  - Cytokine storm [Recovered/Resolved]
  - COVID-19 [Recovered/Resolved]
  - Pyrexia [Unknown]
  - Acute respiratory failure [Recovered/Resolved]
  - Chest discomfort [Recovered/Resolved]
  - Anosmia [Recovered/Resolved]
